FAERS Safety Report 18000342 (Version 1)
Quarter: 2020Q3

REPORT INFORMATION
  Report Type: Spontaneous
  Country: IT (occurrence: IT)
  Receive Date: 20200709
  Receipt Date: 20200709
  Transmission Date: 20201103
  Serious: Yes (Other)
  Sender: FDA-Public Use
  Company Number: NVSC2020IT189141

PATIENT
  Age: 77 Year
  Sex: Male
  Weight: 110 kg

DRUGS (3)
  1. ENZALUTAMIDE [Concomitant]
     Active Substance: ENZALUTAMIDE
     Indication: NEOPLASM PROSTATE
     Dosage: 160 MG, QD
     Route: 048
     Dates: start: 20190514
  2. ZOMETA [Suspect]
     Active Substance: ZOLEDRONIC ACID
     Indication: METASTASES TO BONE
     Dosage: 4 MG
     Route: 042
     Dates: start: 20190610, end: 20200117
  3. ENANTONE LP [Concomitant]
     Active Substance: LEUPROLIDE ACETATE
     Indication: NEOPLASM PROSTATE
     Dosage: 11.25 MG
     Route: 065
     Dates: start: 20180307

REACTIONS (1)
  - Osteonecrosis of jaw [Not Recovered/Not Resolved]

NARRATIVE: CASE EVENT DATE: 20200206
